FAERS Safety Report 13538651 (Version 2)
Quarter: 2017Q2

REPORT INFORMATION
  Report Type: Spontaneous
  Country: US (occurrence: US)
  Receive Date: 20170512
  Receipt Date: 20170529
  Transmission Date: 20170830
  Serious: Yes (Hospitalization, Other)
  Sender: FDA-Public Use
  Company Number: US-ACCORD-051414

PATIENT
  Age: 76 Year
  Sex: Female

DRUGS (5)
  1. BEVACIZUMAB [Suspect]
     Active Substance: BEVACIZUMAB
     Indication: ACUTE MYELOID LEUKAEMIA
  2. FOLINIC ACID [Suspect]
     Active Substance: LEUCOVORIN
     Indication: ACUTE MYELOID LEUKAEMIA
  3. VANCOMYCIN [Concomitant]
     Active Substance: VANCOMYCIN
  4. FLUOROURACIL. [Suspect]
     Active Substance: FLUOROURACIL
     Indication: ACUTE MYELOID LEUKAEMIA
  5. METRONIDAZOLE. [Concomitant]
     Active Substance: METRONIDAZOLE

REACTIONS (5)
  - Clostridium difficile infection [Recovering/Resolving]
  - Off label use [Unknown]
  - Colitis [Recovering/Resolving]
  - Tongue pigmentation [Recovering/Resolving]
  - Tongue eruption [Recovering/Resolving]
